FAERS Safety Report 8278459 (Version 2)
Quarter: 2013Q3

REPORT INFORMATION
  Report Type: Spontaneous
  Country: FR (occurrence: None)
  Receive Date: 20111202
  Receipt Date: 20130819
  Transmission Date: 20140515
  Serious: Yes (Other)
  Sender: FDA-Public Use
  Company Number: 2011FR0304

PATIENT
  Age: 31 Year
  Sex: Female

DRUGS (1)
  1. KINERET [Suspect]
     Indication: TUMOUR NECROSIS FACTOR RECEPTOR-ASSOCIATED PERIODIC SYNDROME
     Dosage: 100 MG (100 MG, 1 IN 1 D)
     Route: 058
     Dates: start: 201008

REACTIONS (1)
  - Sarcoidosis [None]
